FAERS Safety Report 8157273-1 (Version None)
Quarter: 2012Q1

REPORT INFORMATION
  Report Type: 
  Country: None (occurrence: None)
  Receive Date: 20120222
  Receipt Date: 20120216
  Transmission Date: 20120608
  Serious: Yes (Hospitalization)
  Sender: FDA-Public Use
  Company Number: JP-B.I. PHARMACEUTICALS,INC./RIDGEFIELD-2012-BP-01551NB

PATIENT
  Age: 77 Year
  Sex: Female
  Weight: 42.4 kg

DRUGS (2)
  1. PRADAXA [Suspect]
     Indication: ATRIAL FIBRILLATION
     Dosage: 220 MG
     Route: 048
  2. ASPIRIN [Suspect]
     Route: 065

REACTIONS (2)
  - DRUG INEFFECTIVE [None]
  - ARTERIAL OCCLUSIVE DISEASE [None]
